FAERS Safety Report 7073160-4 (Version None)
Quarter: 2010Q4

REPORT INFORMATION
  Report Type: 
  Country: None (occurrence: None)
  Receive Date: 20101029
  Receipt Date: 20100720
  Transmission Date: 20110411
  Serious: No
  Sender: FDA-Public Use
  Company Number: A0857926A

PATIENT
  Sex: Female

DRUGS (4)
  1. ADVAIR [Suspect]
     Indication: PRODUCT USED FOR UNKNOWN INDICATION
     Dosage: 1PUFF TWICE PER DAY
     Route: 055
     Dates: start: 19990101
  2. PREDNISONE [Suspect]
  3. SPIRIVA [Concomitant]
  4. PENICILLIN [Concomitant]

REACTIONS (7)
  - DEREALISATION [None]
  - FEAR [None]
  - HYPERSOMNIA [None]
  - INHALATION THERAPY [None]
  - MALAISE [None]
  - PRODUCT QUALITY ISSUE [None]
  - SOMNOLENCE [None]
